FAERS Safety Report 10063699 (Version 1)
Quarter: 2014Q2

REPORT INFORMATION
  Report Type: Report from Study
  Country: NL (occurrence: NL)
  Receive Date: 20140407
  Receipt Date: 20140407
  Transmission Date: 20141212
  Serious: Yes (Death)
  Sender: FDA-Public Use
  Company Number: PHHY2013NL155946

PATIENT
  Sex: Female

DRUGS (3)
  1. TOBI [Suspect]
     Indication: PSYCHOMOTOR RETARDATION
     Dosage: 28 DAYS SCHEDULE
     Route: 055
  2. IPRAXA [Concomitant]
     Dosage: UNK
  3. NACL [Concomitant]
     Dosage: UNK

REACTIONS (1)
  - Death [Fatal]
